FAERS Safety Report 15314229 (Version 2)
Quarter: 2018Q3

REPORT INFORMATION
  Report Type: Spontaneous
  Country: US (occurrence: US)
  Receive Date: 20180824
  Receipt Date: 20180827
  Transmission Date: 20181010
  Serious: No
  Sender: FDA-Public Use
  Company Number: US-PFIZER INC-2018336178

PATIENT

DRUGS (1)
  1. AMIDATE [Suspect]
     Active Substance: ETOMIDATE
     Dosage: UNK

REACTIONS (2)
  - Drug ineffective [Unknown]
  - Product storage error [Unknown]
